FAERS Safety Report 22162953 (Version 6)
Quarter: 2023Q2

REPORT INFORMATION
  Report Type: Spontaneous
  Country: US (occurrence: US)
  Receive Date: 20230401
  Receipt Date: 20230427
  Transmission Date: 20230722
  Serious: Yes (Death, Hospitalization, Other)
  Sender: FDA-Public Use
  Company Number: US-UNITED THERAPEUTICS-UNT-2023-008983

PATIENT
  Age: 85 Year
  Sex: Female
  Weight: 54.422 kg

DRUGS (7)
  1. TYVASO DPI [Suspect]
     Active Substance: TREPROSTINIL
     Indication: Pulmonary arterial hypertension
     Dosage: 16 ?G, QID (DECREASED DOSE)
     Dates: start: 202303
  2. TYVASO DPI [Suspect]
     Active Substance: TREPROSTINIL
     Dosage: UNK (RESTARTED)
     Dates: start: 202304
  3. TYVASO DPI [Suspect]
     Active Substance: TREPROSTINIL
     Dosage: UNK
     Dates: start: 20230320
  4. TYVASO DPI [Suspect]
     Active Substance: TREPROSTINIL
     Indication: Pulmonary arterial hypertension
     Dosage: UNK
  5. TYVASO DPI [Suspect]
     Active Substance: TREPROSTINIL
     Dosage: UNK
  6. SILDENAFIL CITRATE [Suspect]
     Active Substance: SILDENAFIL CITRATE
     Indication: Product used for unknown indication
     Dosage: UNK
     Route: 065
  7. AMLODIPINE [Concomitant]
     Active Substance: AMLODIPINE BESYLATE
     Indication: Product used for unknown indication
     Dosage: UNK
     Route: 065

REACTIONS (15)
  - Death [Fatal]
  - Decreased appetite [Unknown]
  - Pain [Unknown]
  - Fatigue [Unknown]
  - Dyspnoea [Unknown]
  - Cardiac disorder [Unknown]
  - Urinary tract infection [Unknown]
  - Asthenia [Unknown]
  - Feeling cold [Unknown]
  - Hot flush [Unknown]
  - Secretion discharge [Unknown]
  - Diarrhoea [Unknown]
  - Gait disturbance [Unknown]
  - Cough [Unknown]
  - Weight decreased [Unknown]

NARRATIVE: CASE EVENT DATE: 20230301
